FAERS Safety Report 14665360 (Version 2)
Quarter: 2018Q2

REPORT INFORMATION
  Report Type: Spontaneous
  Country: GB (occurrence: GB)
  Receive Date: 20180321
  Receipt Date: 20180529
  Transmission Date: 20180711
  Serious: Yes (Hospitalization)
  Sender: FDA-Public Use
  Company Number: GB-BAXTER-2018BAX009053

PATIENT
  Sex: Male

DRUGS (2)
  1. DIANEAL [Suspect]
     Active Substance: CALCIUM CHLORIDE\DEXTROSE\MAGNESIUM CHLORIDE\SODIUM CHLORIDE\SODIUM LACTATE
     Indication: PERITONEAL DIALYSIS
     Route: 033
  2. DIANEAL [Suspect]
     Active Substance: CALCIUM CHLORIDE\DEXTROSE\MAGNESIUM CHLORIDE\SODIUM CHLORIDE\SODIUM LACTATE
     Indication: PERITONEAL DIALYSIS
     Route: 033

REACTIONS (6)
  - Tremor [Recovering/Resolving]
  - Diarrhoea [Recovering/Resolving]
  - Infection [Unknown]
  - Vomiting [Recovering/Resolving]
  - Peritoneal cloudy effluent [Recovering/Resolving]
  - Paraesthesia [Unknown]
